FAERS Safety Report 11255067 (Version 4)
Quarter: 2016Q3

REPORT INFORMATION
  Report Type: Spontaneous
  Country: JP (occurrence: JP)
  Receive Date: 20150709
  Receipt Date: 20160907
  Transmission Date: 20161109
  Serious: Yes (Hospitalization, Other)
  Sender: FDA-Public Use
  Company Number: JP-ASTELLAS-2015JP014472

PATIENT
  Age: 72 Year
  Sex: Male

DRUGS (6)
  1. DEXALTIN [Suspect]
     Active Substance: DEXAMETHASONE
     Indication: PRODUCT USED FOR UNKNOWN INDICATION
     Dosage: UNK UNK, UNKNOWN FREQ.
     Route: 065
  2. AZUNOL                             /00317302/ [Concomitant]
     Indication: PRODUCT USED FOR UNKNOWN INDICATION
     Dosage: UNK UNK, A FEW TIMES
     Route: 065
     Dates: start: 20021028
  3. PROTOPIC [Suspect]
     Active Substance: TACROLIMUS
     Dosage: UNK UNK, AS NEEDED
     Route: 061
     Dates: end: 201403
  4. PROTOPIC [Suspect]
     Active Substance: TACROLIMUS
     Dosage: SMALL DOSE, ONCE OR TWICE/DAY
     Route: 061
  5. AMPHOTERICIN [Concomitant]
     Active Substance: AMPHOTERICIN B
     Indication: CANDIDA INFECTION
     Route: 065
  6. PROTOPIC [Suspect]
     Active Substance: TACROLIMUS
     Indication: PAIN
     Dosage: SMALL DOSE, A FEW TIMES
     Route: 061
     Dates: start: 200309

REACTIONS (4)
  - Focal epithelial hyperplasia [Recovering/Resolving]
  - Off label use [Unknown]
  - Oral papilloma [Recovering/Resolving]
  - Pancreatic carcinoma [Unknown]

NARRATIVE: CASE EVENT DATE: 200309
